FAERS Safety Report 4883737-X (Version None)
Quarter: 2006Q1

REPORT INFORMATION
  Report Type: 
  Country: None (occurrence: None)
  Receive Date: 20060113
  Receipt Date: 20051229
  Transmission Date: 20060701
  Serious: Yes (Other)
  Sender: FDA-Public Use
  Company Number: US200512001379

PATIENT
  Age: 80 Year
  Sex: Female
  Weight: 56.7 kg

DRUGS (2)
  1. FORTEO [Suspect]
     Indication: OSTEOPOROSIS
     Dosage: 20 UG, DAILY (1/D),
     Dates: start: 20040504
  2. FORTEO [Concomitant]

REACTIONS (15)
  - ACCIDENT [None]
  - ASTHENIA [None]
  - BLOOD ALKALINE PHOSPHATASE INCREASED [None]
  - CATARACT [None]
  - CHONDROPATHY [None]
  - DEMENTIA [None]
  - DIABETES MELLITUS [None]
  - FATIGUE [None]
  - HYPERTENSION [None]
  - LORDOSIS [None]
  - MUSCLE STRAIN [None]
  - NEPHROLITHIASIS [None]
  - PROTEIN URINE PRESENT [None]
  - RED BLOOD CELLS URINE POSITIVE [None]
  - SPINAL OSTEOARTHRITIS [None]
